FAERS Safety Report 8911403 (Version 2)
Quarter: 2013Q1

REPORT INFORMATION
  Report Type: Spontaneous
  Country: US (occurrence: US)
  Receive Date: 20121116
  Receipt Date: 20130110
  Transmission Date: 20140127
  Serious: Yes (Other)
  Sender: FDA-Public Use
  Company Number: US-SANOFI-AVENTIS-2012SA082035

PATIENT
  Age: 69 Year
  Sex: Female
  Weight: 94 kg

DRUGS (3)
  1. LANTUS SOLOSTAR [Suspect]
     Dosage: DOSE:64 UNIT(S)
     Route: 058
     Dates: start: 2011
  2. SOLOSTAR [Suspect]
     Dates: start: 2011
  3. NOVOLOG [Concomitant]

REACTIONS (3)
  - Kidney infection [Unknown]
  - Influenza [Unknown]
  - Dehydration [Unknown]
